FAERS Safety Report 8789997 (Version 2)
Quarter: 2012Q4

REPORT INFORMATION
  Report Type: 
  Country: MX (occurrence: MX)
  Receive Date: 20120917
  Receipt Date: 20120927
  Transmission Date: 20130627
  Serious: Yes (Death, Hospitalization)
  Sender: FDA-Public Use
  Company Number: MX-TEVA-357579ISR

PATIENT
  Sex: Male

DRUGS (4)
  1. CIPROFLOXACIN [Suspect]
     Route: 065
  2. MEROPENEM [Suspect]
     Route: 065
  3. LINEZOLID [Suspect]
     Route: 065
  4. VANCOMYCIN [Suspect]
     Route: 065

REACTIONS (3)
  - Systemic candida [Unknown]
  - Urinary tract infection [Unknown]
  - Death [Fatal]
